FAERS Safety Report 23682009 (Version 1)
Quarter: 2024Q1

REPORT INFORMATION
  Report Type: Report from Study
  Country: US (occurrence: US)
  Receive Date: 20240328
  Receipt Date: 20240328
  Transmission Date: 20240410
  Serious: No
  Sender: FDA-Public Use
  Company Number: US-ALXN-A202311674

PATIENT
  Sex: Female

DRUGS (2)
  1. STRENSIQ [Suspect]
     Active Substance: ASFOTASE ALFA
     Indication: Hypophosphatasia
     Dosage: UNK
     Route: 065
  2. TRAMADOL [Concomitant]
     Active Substance: TRAMADOL\TRAMADOL HYDROCHLORIDE
     Indication: Product used for unknown indication
     Dosage: UNK
     Route: 065

REACTIONS (9)
  - Blood alkaline phosphatase decreased [Unknown]
  - Tendon rupture [Unknown]
  - Nervous system disorder [Unknown]
  - Dysgraphia [Unknown]
  - Tremor [Unknown]
  - Cognitive disorder [Unknown]
  - Aphasia [Unknown]
  - Laboratory test abnormal [Unknown]
  - Limb operation [Unknown]
